FAERS Safety Report 17074624 (Version 1)
Quarter: 2019Q4

REPORT INFORMATION
  Report Type: Spontaneous
  Country: US (occurrence: US)
  Receive Date: 20191028
  Receipt Date: 20191028
  Transmission Date: 20200122
  Serious: Yes (Hospitalization)
  Sender: FDA-Public Use
  Company Number: None

PATIENT
  Age: 72 Year
  Sex: Female

DRUGS (12)
  1. CALCIUM+D3 [Concomitant]
  2. SERTRALINE [Concomitant]
     Active Substance: SERTRALINE HYDROCHLORIDE
  3. FLUOXETINE [Concomitant]
     Active Substance: FLUOXETINE HYDROCHLORIDE
  4. MECLIZINE [Concomitant]
     Active Substance: MECLIZINE HYDROCHLORIDE
  5. PRAVASATIN [Concomitant]
  6. GLATIRAMER 40MG/ML [Suspect]
     Active Substance: GLATIRAMER
     Indication: MULTIPLE SCLEROSIS
     Route: 058
     Dates: start: 20190830
  7. BACLOFEN. [Concomitant]
     Active Substance: BACLOFEN
  8. COPAXONE [Concomitant]
     Active Substance: GLATIRAMER ACETATE
  9. MULTIVITAMIN [Concomitant]
     Active Substance: VITAMINS
  10. ALENDRONATE [Concomitant]
     Active Substance: ALENDRONATE SODIUM
  11. AMANTADINE. [Concomitant]
     Active Substance: AMANTADINE HYDROCHLORIDE
  12. PROVIGIL [Concomitant]
     Active Substance: MODAFINIL

REACTIONS (5)
  - Product substitution issue [None]
  - Hypertension [None]
  - Fall [None]
  - Pleural effusion [None]
  - Cardiomyopathy [None]

NARRATIVE: CASE EVENT DATE: 20191027
